FAERS Safety Report 4470974-1 (Version None)
Quarter: 2004Q4

REPORT INFORMATION
  Report Type: 
  Country: None (occurrence: None)
  Receive Date: 20041011
  Receipt Date: 20041005
  Transmission Date: 20050328
  Serious: Yes (Life-Threatening, Hospitalization, Disabling, Other)
  Sender: FDA-Public Use
  Company Number: BR-MERCK-0410BRA00273

PATIENT
  Age: 63 Year
  Sex: Female

DRUGS (2)
  1. METHYLDOPATE HYDROCHLORIDE [Concomitant]
     Route: 065
  2. VIOXX [Suspect]
     Indication: OSTEOARTHRITIS
     Route: 048
     Dates: start: 20040915, end: 20040919

REACTIONS (1)
  - CEREBROVASCULAR ACCIDENT [None]
